FAERS Safety Report 8182653-8 (Version None)
Quarter: 2012Q1

REPORT INFORMATION
  Report Type: 
  Country: None (occurrence: None)
  Receive Date: 20120305
  Receipt Date: 20120227
  Transmission Date: 20120608
  Serious: No
  Sender: FDA-Public Use
  Company Number: US-PFIZER INC-2011154185

PATIENT
  Sex: Male

DRUGS (3)
  1. DILANTIN-125 [Suspect]
     Indication: EPILEPSY
     Dosage: 30 MG
  2. DILANTIN-125 [Suspect]
     Dosage: 100 MG
  3. DILANTIN-125 [Suspect]
     Dosage: 30MG+100MG

REACTIONS (1)
  - STRESS [None]
